FAERS Safety Report 19450643 (Version 1)
Quarter: 2021Q2

REPORT INFORMATION
  Report Type: Report from Study
  Country: CO (occurrence: CO)
  Receive Date: 20210622
  Receipt Date: 20210622
  Transmission Date: 20210717
  Serious: Yes (Other)
  Sender: FDA-Public Use
  Company Number: NVSC2021CO134563

PATIENT
  Sex: Male
  Weight: 65 kg

DRUGS (2)
  1. INSULIN [Concomitant]
     Active Substance: INSULIN NOS
     Indication: DIABETES MELLITUS
     Dosage: UNK, Q8H, STARTED 10 YEARS AGO
     Route: 058
  2. LOSARTAN. [Suspect]
     Active Substance: LOSARTAN
     Indication: HYPERTENSION
     Dosage: 50 MG, Q12H, STARTED 10 YEARS AGO
     Route: 048

REACTIONS (2)
  - Off label use [Unknown]
  - Chronic obstructive pulmonary disease [Unknown]
